FAERS Safety Report 8728401 (Version 2)
Quarter: 2012Q4

REPORT INFORMATION
  Report Type: 
  Country: JP (occurrence: JP)
  Receive Date: 20120817
  Receipt Date: 20120828
  Transmission Date: 20130627
  Serious: Yes (Other)
  Sender: FDA-Public Use
  Company Number: JP-SANOFI-AVENTIS-2012SA057279

PATIENT
  Age: 74 Year
  Sex: Female

DRUGS (10)
  1. PLAVIX [Suspect]
     Indication: PERCUTANEOUS CORONARY INTERVENTION
     Route: 048
     Dates: start: 20120524
  2. PLAVIX [Suspect]
     Indication: MYOCARDIAL INFARCTION
     Route: 048
     Dates: start: 20120524
  3. BUFFERIN /JPN/ [Concomitant]
     Indication: PERCUTANEOUS CORONARY INTERVENTION
     Route: 048
     Dates: start: 20120524
  4. BUFFERIN /JPN/ [Concomitant]
     Indication: MYOCARDIAL INFARCTION
     Route: 048
     Dates: start: 20120524
  5. ENALAPRIL [Concomitant]
     Indication: HYPERTENSION
     Route: 048
  6. SIGMART [Concomitant]
     Indication: ANGINA PECTORIS
  7. MEXILETINE [Concomitant]
  8. ARTIST [Concomitant]
     Route: 048
  9. LANSOPRAZOLE [Concomitant]
  10. PANALDINE [Concomitant]
     Dates: end: 20120524

REACTIONS (2)
  - Anaemia [Not Recovered/Not Resolved]
  - Pyrexia [Not Recovered/Not Resolved]
